FAERS Safety Report 5444343-1 (Version None)
Quarter: 2007Q3

REPORT INFORMATION
  Report Type: 
  Country: None (occurrence: None)
  Receive Date: 20070906
  Receipt Date: 20070829
  Transmission Date: 20080115
  Serious: Yes (Disabling)
  Sender: FDA-Public Use
  Company Number: JP-ALLERGAN-0709639US

PATIENT
  Sex: Male

DRUGS (8)
  1. ALESION TABLET [Suspect]
     Indication: ECZEMA
     Dosage: 20 MG, QD
     Route: 048
     Dates: start: 20070731
  2. ONON [Concomitant]
     Route: 048
  3. FLUTIDE [Concomitant]
     Route: 055
  4. LENDORMIN [Concomitant]
     Route: 048
  5. ISODINE [Concomitant]
  6. PROPADERM [Concomitant]
     Indication: ECZEMA
     Route: 062
  7. ROXATIDINE ACETATE HCL [Concomitant]
  8. MUCOSTA [Concomitant]
     Route: 048

REACTIONS (1)
  - PLATELET COUNT DECREASED [None]
